FAERS Safety Report 6207060-6 (Version None)
Quarter: 2009Q2

REPORT INFORMATION
  Report Type: 
  Country: None (occurrence: None)
  Receive Date: 20090528
  Receipt Date: 20090518
  Transmission Date: 20091009
  Serious: Yes (Death)
  Sender: FDA-Public Use
  Company Number: US-WATSON-2009-01781

PATIENT
  Sex: Female
  Weight: 77.551 kg

DRUGS (15)
  1. FENTANYL-100 [Suspect]
     Indication: PAIN
     Dosage: 1 PATCH Q 72 HRS
     Route: 062
     Dates: start: 20050101, end: 20081101
  2. VICODIN ES [Concomitant]
     Indication: PAIN
     Dosage: TWO 3 X DAY
     Route: 065
  3. LYRICA [Concomitant]
     Indication: DRUG USE FOR UNKNOWN INDICATION
     Dosage: 300 MG, BID
     Route: 065
  4. CYMBALTA [Concomitant]
     Indication: DRUG USE FOR UNKNOWN INDICATION
     Dosage: 60 MG, DAILY
     Route: 065
  5. NORTRIPTYLINE HCL [Concomitant]
     Indication: DRUG USE FOR UNKNOWN INDICATION
     Dosage: 75 MG, QPM
     Route: 065
  6. ZOLPIDEM [Concomitant]
     Indication: DRUG USE FOR UNKNOWN INDICATION
     Dosage: 10 MG, QPM
     Route: 065
  7. LANTUS [Concomitant]
     Indication: DRUG USE FOR UNKNOWN INDICATION
     Dosage: 85 U, QPM
     Route: 065
  8. PANTOPRAZOLE SODIUM [Concomitant]
     Indication: DRUG USE FOR UNKNOWN INDICATION
     Dosage: 40 MG, DAILY
     Route: 065
  9. LISINOPRIL [Concomitant]
     Indication: DRUG USE FOR UNKNOWN INDICATION
     Dosage: 20 MG, DAILY
     Route: 065
  10. HUMALOG [Concomitant]
     Indication: DRUG USE FOR UNKNOWN INDICATION
     Dosage: SLIDING SCALE
     Route: 065
  11. ASPIRIN [Concomitant]
     Indication: DRUG USE FOR UNKNOWN INDICATION
     Dosage: 325 MG, DAILY
     Route: 065
  12. NIASPAN [Concomitant]
     Indication: DRUG USE FOR UNKNOWN INDICATION
     Dosage: 500 MG, DAILY
     Route: 065
  13. METOPROLOL SUCCINATE [Concomitant]
     Indication: DRUG USE FOR UNKNOWN INDICATION
     Dosage: 25 MG QAM, 1/2 QPM
     Route: 065
  14. METOCLOPRAMIDE [Concomitant]
     Indication: DRUG USE FOR UNKNOWN INDICATION
     Dosage: 10 MG, QPM
     Route: 065
  15. SIMVASTATIN [Concomitant]
     Indication: DRUG USE FOR UNKNOWN INDICATION
     Dosage: 80 MG, QPM

REACTIONS (7)
  - ARTERIOSCLEROSIS CORONARY ARTERY [None]
  - CARDIAC HYPERTROPHY [None]
  - CARDIOVASCULAR DISORDER [None]
  - DRUG TOXICITY [None]
  - HEPATIC STEATOSIS [None]
  - OVERDOSE [None]
  - POISONING [None]
